FAERS Safety Report 10016433 (Version 2)
Quarter: 2016Q1

REPORT INFORMATION
  Report Type: Spontaneous
  Country: IT (occurrence: IT)
  Receive Date: 20140317
  Receipt Date: 20160224
  Transmission Date: 20160525
  Serious: Yes (Other)
  Sender: FDA-Public Use
  Company Number: IT-BRISTOL-MYERS SQUIBB COMPANY-20478012

PATIENT
  Age: 25 Year
  Sex: Male

DRUGS (5)
  1. VEPESID [Suspect]
     Active Substance: ETOPOSIDE
     Indication: GERM CELL CANCER
     Dosage: ON DAYS 1,2,3 AND 4.
     Route: 065
  2. CARBOPLATIN. [Suspect]
     Active Substance: CARBOPLATIN
     Indication: GERM CELL CANCER
     Dosage: 1DF: AUC 20  ON DAYS 1,2,3 AND 4.
     Route: 065
  3. BRIPLATIN [Concomitant]
     Active Substance: CISPLATIN
     Indication: PRODUCT USED FOR UNKNOWN INDICATION
     Dosage: 20 MG/M2, UNK
     Route: 065
  4. CYCLOPHOSPHAMIDE. [Suspect]
     Active Substance: CYCLOPHOSPHAMIDE
     Indication: GERM CELL CANCER
     Dosage: ON DAYS 1,2,3 AND 4.
     Route: 065
  5. BLEOMYCIN SULFATE [Concomitant]
     Active Substance: BLEOMYCIN SULFATE
     Indication: PRODUCT USED FOR UNKNOWN INDICATION
     Dosage: 30 IU, UNK
     Route: 065

REACTIONS (3)
  - Product use issue [Unknown]
  - Liver injury [Recovered/Resolved]
  - Alpha 1 foetoprotein increased [Recovered/Resolved]
